FAERS Safety Report 22336740 (Version 1)
Quarter: 2023Q2

REPORT INFORMATION
  Report Type: Report from Study
  Country: US (occurrence: None)
  Receive Date: 20230518
  Receipt Date: 20230518
  Transmission Date: 20230722
  Serious: Yes (Other)
  Sender: FDA-Public Use
  Company Number: US-ROCHE-3349284

PATIENT

DRUGS (11)
  1. RITUXIMAB [Suspect]
     Active Substance: RITUXIMAB
     Indication: Burkitt^s lymphoma
     Dosage: LAST DOSE ADMINISTERED ON 15/JUL/2013, TOTAL DOSE 800 MG.
     Route: 042
     Dates: start: 20130715
  2. RITUXIMAB [Suspect]
     Active Substance: RITUXIMAB
     Dosage: SUBSEQUENT DOSE OF INTRAVENOUS RITUXIMAB 375 MG/M2 ON 26/AUG/2013, 16/SEP/2013, 07/OCT/2013, 28/OCT/
     Route: 042
     Dates: start: 20130805
  3. FILGRASTIM [Suspect]
     Active Substance: FILGRASTIM
     Indication: Burkitt^s lymphoma
     Dosage: LAST DOSE ADMINISTERED ON 15/JUL/2013, TOTAL DOSE 480 MG AND SUBSEQUENT DOSE OF FILGRASTIM 480 UG ON
     Route: 065
     Dates: start: 20130715
  4. CYCLOPHOSPHAMIDE [Suspect]
     Active Substance: CYCLOPHOSPHAMIDE
     Indication: Burkitt^s lymphoma
     Dosage: TOTAL DOSE 1600 MG
     Route: 065
     Dates: start: 20130719, end: 20130719
  5. CYCLOPHOSPHAMIDE [Suspect]
     Active Substance: CYCLOPHOSPHAMIDE
     Dosage: TOTAL DOSE 1800 MG
     Route: 065
     Dates: start: 20130809, end: 20130809
  6. CYCLOPHOSPHAMIDE [Suspect]
     Active Substance: CYCLOPHOSPHAMIDE
     Dosage: TOTAL DOSE 2200 MG. SUBSEQUENT DOSE OF CYCLOPHOSPHAMIDE 1296 MG/M2 ON 20/SEP/2013, 11/OCT/2013 AND 0
     Route: 065
     Dates: start: 20130830, end: 20130830
  7. PREDNISONE [Suspect]
     Active Substance: PREDNISONE
     Indication: Burkitt^s lymphoma
     Dosage: SUBSEQUENT DOSE OF 60 MG/M2 PREDNISONE WAS ADMINISTERED ON15/JUL/2013 TO 19/JUL/2013, 05/AUG/2013 TO
     Route: 065
     Dates: start: 20130715, end: 20130920
  8. VINCRISTINE [Suspect]
     Active Substance: VINCRISTINE
     Indication: Burkitt^s lymphoma
     Dosage: SUBSEQUENT DOSE OF VINCRISTINE 0.4 MG/M2 WAS ALSO ADMINISTERED ON 15/JUL/2013 TO 18/JUL/2013, 05/AUG
     Route: 065
     Dates: start: 20130715
  9. ETOPOSIDE [Suspect]
     Active Substance: ETOPOSIDE
     Indication: Burkitt^s lymphoma
     Dosage: SUBSEQUENT DOSE OF ETOPOSIDE 50 MG/M2 WAS ALSO ADMINISTERED ON 15/JUL/2013 TO 18/JUL/2013, 60 MG/M2
     Route: 065
     Dates: start: 20130715, end: 20131031
  10. DOXORUBICIN [Suspect]
     Active Substance: DOXORUBICIN
     Indication: Burkitt^s lymphoma
     Dosage: SUBSEQUENT DOSE OF DOXORUBICIN 10 MG/M2 WAS ALSO ADMINISTERED ON 15/JUL/2013 TO 18/JUL/2013, 12 MG/M
     Route: 065
     Dates: start: 20130715, end: 20131031
  11. METHOTREXATE [Suspect]
     Active Substance: METHOTREXATE
     Indication: Burkitt^s lymphoma
     Dosage: SUBSEQUENT DOSE OF METHOTREXATE 12 MG WAS ALSO ADMINISTERED ON 22/AUG/2013, 19/SEP/2013, 07/OCT/2013
     Route: 065
     Dates: start: 20130822, end: 20130822

REACTIONS (4)
  - Hyperglycaemia [Recovered/Resolved]
  - Neutrophil count decreased [Recovered/Resolved]
  - White blood cell count decreased [Recovered/Resolved]
  - Anaemia [Recovered/Resolved]

NARRATIVE: CASE EVENT DATE: 20130805
